FAERS Safety Report 6265763-1 (Version None)
Quarter: 2009Q3

REPORT INFORMATION
  Report Type: 
  Country: None (occurrence: None)
  Receive Date: 20090709
  Receipt Date: 20090709
  Transmission Date: 20100115
  Serious: Yes (Life-Threatening, Hospitalization, Other)
  Sender: FDA-Public Use
  Company Number: None

PATIENT
  Age: 26 Year
  Sex: Male
  Weight: 99.7913 kg

DRUGS (2)
  1. TRAMADOL HCL [Suspect]
     Indication: DEPENDENCE
     Dosage: UP TO 70 DAILY PO
     Route: 048
     Dates: start: 20030601, end: 20090708
  2. ULTRAM [Suspect]
     Indication: BACK PAIN

REACTIONS (6)
  - CONVULSION [None]
  - DRUG DEPENDENCE [None]
  - ECONOMIC PROBLEM [None]
  - FAMILY STRESS [None]
  - LOSS OF EMPLOYMENT [None]
  - SELF-MEDICATION [None]
